FAERS Safety Report 9805516 (Version 3)
Quarter: 2014Q1

REPORT INFORMATION
  Report Type: Spontaneous
  Country: US (occurrence: None)
  Receive Date: 20140107
  Receipt Date: 20140210
  Transmission Date: 20141002
  Serious: Yes (Hospitalization)
  Sender: FDA-Public Use
  Company Number: AUR-APL-2014-00070

PATIENT
  Age: 52 Year
  Sex: Male

DRUGS (3)
  1. ACICLOVIR (ACICLOVIR) [Suspect]
     Indication: HERPES SIMPLEX
     Dosage: 1200 MG, (600 MG, 1 IN 12 HOURS)
     Route: 042
  2. ACICLOVIR (ACICLOVIR) [Suspect]
     Indication: ENCEPHALITIS VIRAL
     Dosage: 1200 MG, (600 MG, 1 IN 12 HOURS)
     Route: 042
  3. VALACYCLOVIR [Suspect]
     Indication: HERPES ZOSTER
     Dosage: 3 GM (1 GM, 3 IN 1 D)
     Route: 048

REACTIONS (9)
  - Neurotoxicity [None]
  - Status epilepticus [None]
  - Irritability [None]
  - Hallucination [None]
  - Disorientation [None]
  - Somnolence [None]
  - Convulsion [None]
  - Metabolic encephalopathy [None]
  - Haemodialysis [None]
